FAERS Safety Report 6965356-4 (Version None)
Quarter: 2010Q3

REPORT INFORMATION
  Report Type: 
  Country: None (occurrence: None)
  Receive Date: 20100903
  Receipt Date: 20100827
  Transmission Date: 20110219
  Serious: Yes (Other)
  Sender: FDA-Public Use
  Company Number: CA-ABBOTT-10P-056-0666570-00

PATIENT
  Age: 11 Year
  Sex: Female

DRUGS (8)
  1. SEVOFLURANE [Suspect]
     Indication: INDUCTION OF ANAESTHESIA
  2. SEVOFLURANE [Suspect]
     Indication: MAINTENANCE OF ANAESTHESIA
  3. ONDANSETRON [Suspect]
     Indication: PROPHYLAXIS OF NAUSEA AND VOMITING
  4. REMIFENTANIL [Concomitant]
     Indication: INDUCTION OF ANAESTHESIA
     Route: 042
  5. ROCURONIUM BROMIDE [Concomitant]
     Indication: INDUCTION OF ANAESTHESIA
  6. DEXAMETHASONE [Concomitant]
     Indication: PROPHYLAXIS OF NAUSEA AND VOMITING
  7. DIMENHYDRINATE [Concomitant]
     Indication: PROPHYLAXIS OF NAUSEA AND VOMITING
  8. FENTANYL CITRATE [Concomitant]
     Indication: ANAESTHESIA

REACTIONS (1)
  - VENTRICULAR TACHYCARDIA [None]
